FAERS Safety Report 16399961 (Version 5)
Quarter: 2022Q3

REPORT INFORMATION
  Report Type: Spontaneous
  Country: FR (occurrence: FR)
  Receive Date: 20190606
  Receipt Date: 20220728
  Transmission Date: 20221026
  Serious: Yes (Hospitalization, Congenital Anomaly, Other)
  Sender: FDA-Public Use
  Company Number: FR-SA-2019SA092750

PATIENT
  Sex: Male
  Weight: 3.29 kg

DRUGS (3)
  1. TOPIRAMATE [Suspect]
     Active Substance: TOPIRAMATE
     Indication: Epilepsy
     Route: 064
     Dates: start: 20061111, end: 20070730
  2. VALPROATE SODIUM [Suspect]
     Active Substance: VALPROATE SODIUM
     Indication: Epilepsy
     Route: 064
     Dates: start: 20061111, end: 20070730
  3. FOLIC ACID [Concomitant]
     Active Substance: FOLIC ACID
     Route: 064

REACTIONS (33)
  - Foetal anticonvulsant syndrome [Unknown]
  - Multiple congenital abnormalities [Unknown]
  - Head injury [Unknown]
  - Skin abrasion [Unknown]
  - Exomphalos [Recovered/Resolved]
  - Fallot^s tetralogy [Recovered/Resolved]
  - Talipes [Unknown]
  - Congenital myopia [Unknown]
  - Hypotonia neonatal [Unknown]
  - Congenital knee deformity [Unknown]
  - Talipes [Recovering/Resolving]
  - Developmental coordination disorder [Unknown]
  - Hydrocele [Recovered/Resolved]
  - Behaviour disorder [Unknown]
  - Disturbance in attention [Unknown]
  - Congenital nystagmus [Recovered/Resolved]
  - Disturbance in attention [Unknown]
  - Learning disorder [Unknown]
  - Anxiety [Unknown]
  - Psychomotor skills impaired [Unknown]
  - Pectus excavatum [Unknown]
  - Congenital astigmatism [Unknown]
  - Speech disorder developmental [Recovering/Resolving]
  - Foetal exposure during pregnancy [Recovered/Resolved]
  - Gait disturbance [Unknown]
  - Body dysmorphic disorder [Unknown]
  - Right ventricular dilatation [Unknown]
  - Congenital scoliosis [Unknown]
  - Pelvic deformity [Unknown]
  - Developmental delay [Unknown]
  - Movement disorder [Unknown]
  - Dysmorphism [Unknown]
  - Fatigue [Unknown]
